FAERS Safety Report 15340455 (Version 6)
Quarter: 2020Q1

REPORT INFORMATION
  Report Type: Spontaneous
  Country: BE (occurrence: BE)
  Receive Date: 20180831
  Receipt Date: 20200130
  Transmission Date: 20200409
  Serious: Yes (Other)
  Sender: FDA-Public Use
  Company Number: PHHY2017BE188413

PATIENT
  Age: 70 Year
  Sex: Female
  Weight: 61.5 kg

DRUGS (19)
  1. BEVACIZUMAB. [Suspect]
     Active Substance: BEVACIZUMAB
     Indication: OVARIAN CANCER
     Dosage: 960 MG, QW3
     Route: 042
     Dates: start: 20171102
  2. BEFACT FORTE [Concomitant]
     Indication: PRODUCT USED FOR UNKNOWN INDICATION
     Dosage: UNK
     Route: 065
  3. DISODIUM PHOSPHATE [Concomitant]
     Indication: PRODUCT USED FOR UNKNOWN INDICATION
     Dosage: UNK
     Route: 065
     Dates: start: 20180206, end: 20180206
  4. FRAXIPARINE [Concomitant]
     Active Substance: NADROPARIN CALCIUM
     Indication: PRODUCT USED FOR UNKNOWN INDICATION
     Dosage: 0.3 ML
     Route: 058
     Dates: start: 20180208, end: 20180226
  5. BEVACIZUMAB. [Suspect]
     Active Substance: BEVACIZUMAB
     Dosage: 975 MG, UNK
     Route: 042
     Dates: start: 20171123
  6. VOLTAREN [Concomitant]
     Active Substance: DICLOFENAC SODIUM
     Indication: PRODUCT USED FOR UNKNOWN INDICATION
     Dosage: 50 MG, QD
     Route: 048
     Dates: start: 20171109
  7. PANTOMED [Concomitant]
     Indication: PRODUCT USED FOR UNKNOWN INDICATION
     Dosage: 40 MG, QD
     Route: 065
     Dates: start: 20180209, end: 20180210
  8. DAFALGAN [Concomitant]
     Active Substance: ACETAMINOPHEN
     Indication: PRODUCT USED FOR UNKNOWN INDICATION
     Dosage: 1 OT, UNK (AS NEEDED)
     Route: 065
     Dates: start: 20180131
  9. TEMESTA EXPIDET [Concomitant]
     Active Substance: LORAZEPAM
     Indication: INSOMNIA
     Dosage: 1 MG, QD
     Route: 065
     Dates: start: 20180207, end: 20180208
  10. PACLITAXEL. [Suspect]
     Active Substance: PACLITAXEL
     Indication: OVARIAN CANCER
     Dosage: 132 MG/M2, QW
     Route: 042
     Dates: start: 20171102
  11. PACLITAXEL. [Suspect]
     Active Substance: PACLITAXEL
     Dosage: 133.6 MG/M2, QW
     Route: 042
     Dates: start: 20171123, end: 20180412
  12. ACECLOFENAC [Concomitant]
     Active Substance: ACECLOFENAC
     Indication: PRODUCT USED FOR UNKNOWN INDICATION
     Dosage: 1 G
     Route: 042
     Dates: start: 20180208, end: 20180210
  13. CARBOPLATIN. [Suspect]
     Active Substance: CARBOPLATIN
     Indication: OVARIAN CANCER
     Dosage: 1 OT, QMO (DOSE: 6 AUC)
     Route: 042
     Dates: start: 20171102, end: 20180329
  14. NORGALAX [Concomitant]
     Indication: CONSTIPATION
     Dosage: UNK
     Route: 065
     Dates: start: 20180212, end: 20180212
  15. BEVACIZUMAB. [Suspect]
     Active Substance: BEVACIZUMAB
     Dosage: 1027 MG, QW3
     Route: 042
     Dates: start: 20180712
  16. MOVICOL [Concomitant]
     Active Substance: POLYETHYLENE GLYCOL 3350\POTASSIUM CHLORIDE\SODIUM BICARBONATE\SODIUM CHLORIDE
     Indication: PRODUCT USED FOR UNKNOWN INDICATION
     Dosage: UNK
     Route: 065
     Dates: start: 20180211
  17. TRAMADOL HYDROCHLORIDE. [Concomitant]
     Active Substance: TRAMADOL HYDROCHLORIDE
     Indication: PRODUCT USED FOR UNKNOWN INDICATION
     Dosage: 50 MG, QD
     Route: 065
     Dates: start: 20180209, end: 20180209
  18. BEFACT [Concomitant]
     Indication: PRODUCT USED FOR UNKNOWN INDICATION
     Route: 065
  19. XANAX [Concomitant]
     Active Substance: ALPRAZOLAM
     Indication: ANXIETY
     Dosage: 0.5 MG, QD
     Route: 065
     Dates: start: 20180206, end: 20180226

REACTIONS (18)
  - Neuropathy peripheral [Not Recovered/Not Resolved]
  - Anal pruritus [Recovered/Resolved]
  - Ecchymosis [Recovered/Resolved]
  - Chest pain [Not Recovered/Not Resolved]
  - Back pain [Not Recovered/Not Resolved]
  - Nausea [Unknown]
  - Musculoskeletal pain [Unknown]
  - Abdominal wound dehiscence [Recovered/Resolved]
  - Oedema peripheral [Recovered/Resolved]
  - Oedema peripheral [Unknown]
  - Fatigue [Recovered/Resolved]
  - Hypertension [Unknown]
  - Fall [Unknown]
  - Toothache [Unknown]
  - Rash [Unknown]
  - Suspected transmission of an infectious agent via product [Unknown]
  - Aphthous ulcer [Recovered/Resolved]
  - Bursitis [Unknown]

NARRATIVE: CASE EVENT DATE: 20171102
